FAERS Safety Report 14802703 (Version 2)
Quarter: 2018Q3

REPORT INFORMATION
  Report Type: Spontaneous
  Country: US (occurrence: US)
  Receive Date: 20180424
  Receipt Date: 20180705
  Transmission Date: 20181010
  Serious: Yes (Other)
  Sender: FDA-Public Use
  Company Number: US-PFIZER INC-2018161228

PATIENT
  Age: 48 Year
  Sex: Female
  Weight: 68.27 kg

DRUGS (1)
  1. LYRICA [Suspect]
     Active Substance: PREGABALIN
     Indication: NEURALGIA
     Dosage: 150 MG, 2X/DAY
     Route: 048

REACTIONS (13)
  - Choking sensation [Unknown]
  - Osteoporosis [Unknown]
  - Fibromyalgia [Unknown]
  - Bone pain [Unknown]
  - Pneumonia [Unknown]
  - Weight increased [Unknown]
  - Osteoarthritis [Unknown]
  - Drug ineffective [Unknown]
  - Feeling abnormal [Unknown]
  - Dry eye [Recovering/Resolving]
  - Dry mouth [Unknown]
  - Intervertebral disc degeneration [Unknown]
  - Arthritis [Unknown]

NARRATIVE: CASE EVENT DATE: 2014
